FAERS Safety Report 18138579 (Version 1)
Quarter: 2020Q3

REPORT INFORMATION
  Report Type: Spontaneous
  Country: US (occurrence: US)
  Receive Date: 20200811
  Receipt Date: 20200811
  Transmission Date: 20201103
  Serious: Yes (Death)
  Sender: FDA-Public Use
  Company Number: None

PATIENT
  Age: 55 Year
  Sex: Male
  Weight: 93.2 kg

DRUGS (19)
  1. MORPHINE [Concomitant]
     Active Substance: MORPHINE
     Dates: start: 20200810, end: 20200811
  2. LEVALBUTEROL. [Concomitant]
     Active Substance: LEVALBUTEROL
     Dates: start: 20200810, end: 20200811
  3. IPRATROIPIUM [Concomitant]
     Dates: start: 20200808, end: 20200811
  4. PULMICORT TURBUHALER [Concomitant]
     Active Substance: BUDESONIDE
     Dates: start: 20200810, end: 20200810
  5. BENZONATATE. [Concomitant]
     Active Substance: BENZONATATE
     Dates: start: 20200808, end: 20200809
  6. LISINOPRIL. [Concomitant]
     Active Substance: LISINOPRIL
     Dates: start: 20200808, end: 20200811
  7. ALPRAZOLAM. [Concomitant]
     Active Substance: ALPRAZOLAM
     Dates: start: 20200809, end: 20200810
  8. LORATADINE. [Concomitant]
     Active Substance: LORATADINE
     Dates: start: 20200809, end: 20200811
  9. ASPIRIN LOW DOSE [Concomitant]
     Active Substance: ASPIRIN
     Dates: start: 20200809, end: 20200810
  10. ALBUTEROL INHALER [Concomitant]
     Active Substance: ALBUTEROL
     Dates: start: 20200808, end: 20200810
  11. TUSSIONEX PENNKINETIC [Concomitant]
     Active Substance: CHLORPHENIRAMINE\HYDROCODONE
     Dates: start: 20200808, end: 20200811
  12. PROSCAR [Concomitant]
     Active Substance: FINASTERIDE
     Dates: start: 20200809, end: 20200811
  13. ACETAMINOPHEN. [Concomitant]
     Active Substance: ACETAMINOPHEN
     Dates: start: 20200808, end: 20200810
  14. DOXYCYCLINE. [Concomitant]
     Active Substance: DOXYCYCLINE
     Dates: start: 20200808, end: 20200810
  15. CEFTRIAXONE. [Concomitant]
     Active Substance: CEFTRIAXONE
     Dates: start: 20200808
  16. REMDESIVIR. [Suspect]
     Active Substance: REMDESIVIR
     Indication: COVID-19
     Route: 042
     Dates: start: 20200810, end: 20200810
  17. ENOXAPARIN [Concomitant]
     Active Substance: ENOXAPARIN
     Dates: start: 20200808, end: 20200811
  18. REMDESIVIR. [Suspect]
     Active Substance: REMDESIVIR
     Indication: COVID-19
     Dosage: ?          OTHER FREQUENCY:ONCE;?
     Route: 042
     Dates: start: 20200809, end: 20200809
  19. DEXAMETHASONE. [Concomitant]
     Active Substance: DEXAMETHASONE
     Dates: start: 20200808, end: 20200810

REACTIONS (1)
  - Therapy cessation [None]

NARRATIVE: CASE EVENT DATE: 20200811
